APPROVED DRUG PRODUCT: GLIPIZIDE AND METFORMIN HYDROCHLORIDE
Active Ingredient: GLIPIZIDE; METFORMIN HYDROCHLORIDE
Strength: 2.5MG;500MG
Dosage Form/Route: TABLET;ORAL
Application: A078728 | Product #002 | TE Code: AB
Applicant: HERITAGE PHARMACEUTICALS INC DBA AVET PHARMACEUTICALS INC
Approved: Jun 23, 2010 | RLD: No | RS: No | Type: RX